FAERS Safety Report 8346018 (Version 5)
Quarter: 2013Q4

REPORT INFORMATION
  Report Type: Spontaneous
  Country: US (occurrence: None)
  Receive Date: 20111212
  Receipt Date: 20131226
  Transmission Date: 20140711
  Serious: Yes (Hospitalization, Other)
  Sender: FDA-Public Use
  Company Number: PHHY2010US28888

PATIENT
  Age: 46 Year
  Sex: Female

DRUGS (5)
  1. EXTAVIA [Suspect]
     Indication: MULTIPLE SCLEROSIS
     Route: 058
     Dates: start: 20100305
  2. LORTAB [Concomitant]
  3. GABAPENTIN (GABAPENTIN) [Concomitant]
  4. IBUPROFEN (IBUPROFEN) [Concomitant]
  5. BACLOFEN [Concomitant]

REACTIONS (6)
  - Fatigue [None]
  - Malaise [None]
  - Injection site erythema [None]
  - Injection site rash [None]
  - Drug dose omission [None]
  - Rash macular [None]
